FAERS Safety Report 6529985-4 (Version None)
Quarter: 2010Q1

REPORT INFORMATION
  Report Type: 
  Country: None (occurrence: None)
  Receive Date: 20100107
  Receipt Date: 20091228
  Transmission Date: 20100710
  Serious: Yes (Hospitalization)
  Sender: FDA-Public Use
  Company Number: FR-PFIZER INC-2009314640

PATIENT
  Age: 65 Year
  Sex: Male

DRUGS (6)
  1. CAMPTOSAR [Suspect]
     Dosage: UNK
     Route: 042
     Dates: start: 20090730, end: 20090904
  2. FLUOROURACIL [Suspect]
     Dosage: UNK
     Route: 042
     Dates: start: 20090730, end: 20090903
  3. CALCIUM FOLINATE [Suspect]
     Dosage: DAY 1
     Route: 048
     Dates: start: 20090730, end: 20090901
  4. AVASTIN [Suspect]
     Dosage: UNK
     Route: 042
     Dates: start: 20090730, end: 20090901
  5. OXYCONTIN [Concomitant]
     Dosage: UNK
     Dates: start: 20090601
  6. OXYNORM [Concomitant]
     Dosage: UNK
     Dates: start: 20090601

REACTIONS (2)
  - DIARRHOEA [None]
  - GENERAL PHYSICAL HEALTH DETERIORATION [None]
